FAERS Safety Report 21763969 (Version 1)
Quarter: 2022Q4

REPORT INFORMATION
  Report Type: Spontaneous
  Country: CN (occurrence: CN)
  Receive Date: 20221222
  Receipt Date: 20221222
  Transmission Date: 20230113
  Serious: Yes (Other)
  Sender: FDA-Public Use
  Company Number: None

PATIENT
  Age: 41 Year
  Sex: Female
  Weight: 52 kg

DRUGS (10)
  1. CYCLOPHOSPHAMIDE [Suspect]
     Active Substance: CYCLOPHOSPHAMIDE
     Indication: Breast cancer female
     Dosage: 800 MG, Q14D, D1, DILUTED WITH SODIUM CHLORIDE 100ML
     Route: 041
     Dates: start: 20221124, end: 20221124
  2. CYCLOPHOSPHAMIDE [Suspect]
     Active Substance: CYCLOPHOSPHAMIDE
     Indication: Neoplasm
  3. CYCLOPHOSPHAMIDE [Suspect]
     Active Substance: CYCLOPHOSPHAMIDE
     Indication: Chemotherapy
  4. SODIUM CHLORIDE [Suspect]
     Active Substance: SODIUM CHLORIDE
     Indication: Medication dilution
     Dosage: 100 ML, Q14D, D1 USED TO DILUTE 800 MG CYCLOPHOSPHAMIDE
     Route: 041
     Dates: start: 20221124, end: 20221124
  5. DEXTROSE MONOHYDRATE [Suspect]
     Active Substance: DEXTROSE MONOHYDRATE
     Indication: Medication dilution
     Dosage: 100 ML, Q14D, D1, USED TO DILUTE 80 MG PIRARUBICIN HYDROCHLORIDE
     Route: 041
     Dates: start: 20221124, end: 20221124
  6. PIRARUBICIN HYDROCHLORIDE [Suspect]
     Active Substance: PIRARUBICIN HYDROCHLORIDE
     Indication: Breast cancer female
     Dosage: 80 MG, Q14D, D1, DILUTED WITH GLUCOSE 100ML
     Route: 041
     Dates: start: 20221124, end: 20221124
  7. PIRARUBICIN HYDROCHLORIDE [Suspect]
     Active Substance: PIRARUBICIN HYDROCHLORIDE
     Indication: Chemotherapy
  8. PIRARUBICIN HYDROCHLORIDE [Suspect]
     Active Substance: PIRARUBICIN HYDROCHLORIDE
     Indication: Neoplasm
  9. PEGYLATED GRANULOCYTE COLONY STIMULATING FACTOR [Concomitant]
     Indication: Prophylaxis
     Dosage: 6 MG, ST, 24 HRS AFTER END OF CHEMOTHERAPY
     Route: 058
  10. Sheng xue bao [Concomitant]
     Indication: Prophylaxis
     Dosage: 15 ML MIXTURE, TID, 24 HRS AFTER END OF CHEMOTHERAPY
     Route: 048

REACTIONS (3)
  - Myelosuppression [Recovered/Resolved]
  - Granulocytopenia [Recovered/Resolved]
  - Neutrophil count decreased [Recovered/Resolved]

NARRATIVE: CASE EVENT DATE: 20221201
